FAERS Safety Report 23976675 (Version 3)
Quarter: 2024Q4

REPORT INFORMATION
  Report Type: Spontaneous
  Country: US (occurrence: US)
  Receive Date: 20240614
  Receipt Date: 20241022
  Transmission Date: 20250115
  Serious: No
  Sender: SANOFI AVENTIS
  Company Number: US-SA-SAC20240613000287

PATIENT
  Sex: Female
  Weight: 78 kg

DRUGS (3)
  1. DUPIXENT [Suspect]
     Active Substance: DUPILUMAB
     Indication: Asthma
     Dosage: 200 MG, Q3W
     Route: 058
  2. OTEZLA [Concomitant]
     Active Substance: APREMILAST
     Dosage: UNK
  3. SKYRIZI [Concomitant]
     Active Substance: RISANKIZUMAB-RZAA
     Dosage: UNK

REACTIONS (5)
  - Malaise [Unknown]
  - Dyspnoea [Unknown]
  - Asthma [Unknown]
  - Inappropriate schedule of product administration [Unknown]
  - Product dose omission issue [Unknown]
